FAERS Safety Report 11469907 (Version 1)
Quarter: 2015Q3

REPORT INFORMATION
  Report Type: Report from Study
  Country: DE (occurrence: DE)
  Receive Date: 20150908
  Receipt Date: 20150908
  Transmission Date: 20151125
  Serious: Yes (Hospitalization)
  Sender: FDA-Public Use
  Company Number: GXKR2015DE004185

PATIENT
  Age: 54 Year
  Sex: Female
  Weight: 75 kg

DRUGS (1)
  1. MTX HEXAL [Suspect]
     Active Substance: METHOTREXATE SODIUM
     Indication: PSORIASIS
     Dosage: 15 MG, UNK
     Route: 058
     Dates: start: 20130626, end: 201506

REACTIONS (2)
  - Pneumonia [Recovered/Resolved]
  - Atelectasis [Recovered/Resolved]

NARRATIVE: CASE EVENT DATE: 20150623
